FAERS Safety Report 7450596-0 (Version None)
Quarter: 2011Q2

REPORT INFORMATION
  Report Type: 
  Country: None (occurrence: None)
  Receive Date: 20110502
  Receipt Date: 20110419
  Transmission Date: 20111010
  Serious: Yes (Hospitalization, Other)
  Sender: FDA-Public Use
  Company Number: US-ELI_LILLY_AND_COMPANY-US201008008216

PATIENT
  Sex: Female

DRUGS (17)
  1. HYDROXYCHLOROQUINE [Concomitant]
     Dosage: 200 MG, UNK
  2. URSODIOL [Concomitant]
     Dosage: 500 MG, 2/D
  3. FORTEO [Suspect]
     Dosage: 20 UG, QD
  4. METHOTREXATE [Concomitant]
     Dosage: 2.5 MG, OTHER
  5. BYSTOLIC [Concomitant]
     Dosage: 5 MG, UNK
  6. RESTASIS [Concomitant]
  7. FOLIC ACID [Concomitant]
     Dosage: 400 MG, DAILY (1/D)
  8. MELOXICAM [Concomitant]
  9. AMLODIPINE BESYLATE AND BENAZEPRIL HYDROCHLORIDE [Concomitant]
     Dosage: UNK, DAILY (1/D)
  10. SEREVENT [Concomitant]
     Dosage: UNK, 2/D
  11. MUCINEX [Concomitant]
     Indication: HYPERSENSITIVITY
  12. FORTEO [Suspect]
     Indication: OSTEOPOROSIS
     Dosage: 20 UG, DAILY (1/D)
     Route: 065
     Dates: start: 20100624, end: 20100624
  13. FLUTICASONE PROPIONATE [Concomitant]
     Indication: HYPERSENSITIVITY
  14. OMEPRAZOLE [Concomitant]
     Dosage: UNK, 2/D
  15. ALVESCO [Concomitant]
     Dosage: UNK, 2/D
  16. ZYRTEC [Concomitant]
     Indication: HYPERSENSITIVITY
  17. CALCIUM+VIT D /00944201/ [Concomitant]
     Dosage: UNK, 2/D

REACTIONS (3)
  - FALL [None]
  - DISCOMFORT [None]
  - HIP FRACTURE [None]
